FAERS Safety Report 6512302-3 (Version None)
Quarter: 2009Q4

REPORT INFORMATION
  Report Type: 
  Country: None (occurrence: None)
  Receive Date: 20091222
  Receipt Date: 20090715
  Transmission Date: 20100525
  Serious: No
  Sender: FDA-Public Use
  Company Number: US-ASTRAZENECA-2009UW19908

PATIENT
  Sex: Male

DRUGS (7)
  1. CRESTOR [Suspect]
     Route: 048
  2. FLOMAX [Concomitant]
  3. ASPIRIN [Concomitant]
  4. TYLENOL [Concomitant]
  5. DOXEPIN HCL [Concomitant]
  6. TARKA [Concomitant]
  7. HYDRPCLOROTHYOID [Concomitant]

REACTIONS (2)
  - RESPIRATORY TRACT INFECTION [None]
  - TONGUE DISCOLOURATION [None]
